FAERS Safety Report 21171997 (Version 1)
Quarter: 2022Q3

REPORT INFORMATION
  Report Type: Spontaneous
  Country: AT (occurrence: AT)
  Receive Date: 20220804
  Receipt Date: 20220804
  Transmission Date: 20221027
  Serious: Yes (Other)
  Sender: FDA-Public Use
  Company Number: AT-BAXTER-2022BAX015973

PATIENT
  Sex: Female

DRUGS (2)
  1. DOXORUBICIN HYDROCHLORIDE [Suspect]
     Active Substance: DOXORUBICIN HYDROCHLORIDE
     Dosage: FIRST CYCLE, INTENDED DOSE AND TOTAL DOSE UNKNOWN
     Route: 065
  2. YONDELIS [Suspect]
     Active Substance: TRABECTEDIN
     Dosage: UNK; FIRST CYCLE
     Route: 042

REACTIONS (1)
  - Febrile neutropenia [Unknown]
